FAERS Safety Report 8290725-2 (Version None)
Quarter: 2012Q2

REPORT INFORMATION
  Report Type: 
  Country: None (occurrence: None)
  Receive Date: 20120417
  Receipt Date: 20110407
  Transmission Date: 20120825
  Serious: No
  Sender: FDA-Public Use
  Company Number: US-ASTRAZENECA-2010SE30403

PATIENT
  Age: 77 Year
  Sex: Female

DRUGS (2)
  1. NEXIUM [Suspect]
     Dosage: EVERYDAY
     Route: 048
  2. DIABETES [Concomitant]

REACTIONS (12)
  - LIMB INJURY [None]
  - EYE DISORDER [None]
  - LIMB DISCOMFORT [None]
  - DYSPEPSIA [None]
  - EYE PRURITUS [None]
  - COMPUTERISED TOMOGRAM [None]
  - CHEST PAIN [None]
  - INCORRECT DOSE ADMINISTERED [None]
  - DIABETES MELLITUS [None]
  - MASS [None]
  - CATARACT OPERATION [None]
  - GASTROOESOPHAGEAL REFLUX DISEASE [None]
